FAERS Safety Report 10380776 (Version 1)
Quarter: 2014Q1

REPORT INFORMATION
  Report Type: Spontaneous
  Country: US (occurrence: None)
  Receive Date: 20140306
  Receipt Date: 20140306
  Transmission Date: 20141002
  Serious: Yes (Other)
  Sender: FDA-Public Use
  Company Number: 163-21880-13072273

PATIENT
  Age: 76 Year
  Sex: Male
  Weight: 81.65 kg

DRUGS (10)
  1. REVLIMID (LENALIDOMIDE) (10 MILLIGRAM, CAPSULES) [Suspect]
     Indication: PLASMA CELL MYELOMA
     Route: 048
     Dates: start: 201208
  2. ACYCLOVIR (ACICLOVIR) (ACICLOVIR) [Concomitant]
  3. ALLOPURINOL [Concomitant]
  4. DIGOXIN [Concomitant]
  5. BIAXIN (CLARITHROMYCIN) [Concomitant]
  6. SPIRONOLACTONE [Concomitant]
  7. WARFARIN [Concomitant]
  8. EFFEXOR (VENLAFAXINE HYDROCHLORIDE) [Concomitant]
  9. PRIMIDONE [Concomitant]
  10. ZOMETA (ZOLEDRONIC ACID) [Concomitant]

REACTIONS (2)
  - Cardiac failure congestive [None]
  - Atrial fibrillation [None]
